FAERS Safety Report 4277870-3 (Version None)
Quarter: 2004Q1

REPORT INFORMATION
  Report Type: 
  Country: None (occurrence: None)
  Receive Date: 20040121
  Receipt Date: 20030123
  Transmission Date: 20041129
  Serious: Yes (Death)
  Sender: FDA-Public Use
  Company Number: 2003-01-1690

PATIENT
  Age: 22 Year
  Sex: Male

DRUGS (3)
  1. SUBUTEX [Suspect]
     Indication: DRUG ABUSER
     Dates: start: 20020201, end: 20020301
  2. SUBUTEX [Suspect]
     Indication: DRUG ABUSER
     Dates: start: 20021127, end: 20021127
  3. ROHYPNOL [Suspect]
     Dates: end: 20021127

REACTIONS (2)
  - INTENTIONAL MISUSE [None]
  - SELF-MEDICATION [None]
